FAERS Safety Report 23779789 (Version 1)
Quarter: 2024Q2

REPORT INFORMATION
  Report Type: Spontaneous
  Country: KR (occurrence: KR)
  Receive Date: 20240424
  Receipt Date: 20240424
  Transmission Date: 20240716
  Serious: Yes (Other)
  Sender: FDA-Public Use
  Company Number: KR-TAKEDA-2024TUS036519

PATIENT
  Age: 78 Year
  Sex: Female

DRUGS (5)
  1. PANTOPRAZOLE SODIUM [Suspect]
     Active Substance: PANTOPRAZOLE SODIUM
     Dosage: 1 DF, 1X/DAY
     Route: 065
     Dates: start: 20211005
  2. OXIRACETAM [Suspect]
     Active Substance: OXIRACETAM
     Dosage: 1 DOSAGE FORM, QD
     Route: 065
     Dates: start: 20211005
  3. TRIMEBUTINE MALEATE [Suspect]
     Active Substance: TRIMEBUTINE MALEATE
     Dosage: 1 DOSAGE FORM, QD
     Route: 065
     Dates: start: 20211005
  4. CILOSTAZOL [Suspect]
     Active Substance: CILOSTAZOL
     Dosage: 1 DOSAGE FORM, QD
     Route: 065
     Dates: start: 20211005
  5. AMLODIPINE\ROSUVASTATIN\TELMISARTAN [Suspect]
     Active Substance: AMLODIPINE\ROSUVASTATIN\TELMISARTAN
     Dosage: 1 DOSAGE FORM, QD
     Route: 065
     Dates: start: 20211005

REACTIONS (2)
  - Retinal haemorrhage [Unknown]
  - Contusion [Unknown]

NARRATIVE: CASE EVENT DATE: 20211005
